FAERS Safety Report 4655198-7 (Version None)
Quarter: 2005Q2

REPORT INFORMATION
  Report Type: 
  Country: None (occurrence: None)
  Receive Date: 20050506
  Receipt Date: 20021114
  Transmission Date: 20051028
  Serious: Yes (Other)
  Sender: FDA-Public Use
  Company Number: GB-GLAXOSMITHKLINE-B0285353A

PATIENT
  Age: 30 Year
  Sex: Male

DRUGS (1)
  1. PAROXETINE HCL [Suspect]
     Indication: ANXIETY
     Route: 048
     Dates: start: 20020101, end: 20021101

REACTIONS (13)
  - AGGRESSION [None]
  - DEPRESSION [None]
  - DRUG WITHDRAWAL SYNDROME [None]
  - FATIGUE [None]
  - GENERAL PHYSICAL HEALTH DETERIORATION [None]
  - HEADACHE [None]
  - HOMICIDAL IDEATION [None]
  - HYPERHIDROSIS [None]
  - OVERDOSE [None]
  - PERSONALITY CHANGE [None]
  - SUICIDAL IDEATION [None]
  - THEFT [None]
  - VOMITING [None]
